FAERS Safety Report 11394389 (Version 1)
Quarter: 2015Q3

REPORT INFORMATION
  Report Type: Spontaneous
  Country: BR (occurrence: BR)
  Receive Date: 20150819
  Receipt Date: 20150819
  Transmission Date: 20151125
  Serious: Yes (Other)
  Sender: FDA-Public Use
  Company Number: BR-JNJFOC-20150810769

PATIENT
  Age: 26 Year
  Sex: Male

DRUGS (1)
  1. REMICADE [Suspect]
     Active Substance: INFLIXIMAB
     Indication: PRODUCT USED FOR UNKNOWN INDICATION
     Dosage: AT WEEK 0, 2 AND 6 WEEKS.
     Route: 042

REACTIONS (7)
  - Diarrhoea [Unknown]
  - Abdominal pain [Unknown]
  - Treatment failure [Unknown]
  - Pus in stool [Unknown]
  - Frequent bowel movements [Unknown]
  - Haematochezia [Unknown]
  - Mucous stools [Unknown]
